FAERS Safety Report 19142122 (Version 1)
Quarter: 2021Q2

REPORT INFORMATION
  Report Type: Spontaneous
  Country: US (occurrence: US)
  Receive Date: 20210416
  Receipt Date: 20210416
  Transmission Date: 20210717
  Serious: No
  Sender: FDA-Public Use
  Company Number: US-BAUSCH-BL-2021-008374

PATIENT
  Sex: Female

DRUGS (1)
  1. LUMIFY [Suspect]
     Active Substance: BRIMONIDINE TARTRATE
     Indication: OCULAR HYPERAEMIA
     Route: 047

REACTIONS (5)
  - Eye pain [Recovered/Resolved]
  - Abnormal sensation in eye [Recovered/Resolved]
  - Asthenopia [Recovered/Resolved]
  - Foreign body sensation in eyes [Recovered/Resolved]
  - Drug ineffective [Unknown]
